FAERS Safety Report 7248233-3 (Version None)
Quarter: 2011Q1

REPORT INFORMATION
  Report Type: 
  Country: None (occurrence: None)
  Receive Date: 20110127
  Receipt Date: 20101129
  Transmission Date: 20110831
  Serious: Yes (Hospitalization, Other)
  Sender: FDA-Public Use
  Company Number: US-BAYER-200942914NA

PATIENT
  Sex: Female
  Weight: 59.091 kg

DRUGS (7)
  1. YAZ [Suspect]
     Indication: CONTRACEPTION
     Route: 048
     Dates: start: 20071114, end: 20080214
  2. UNCODEABLE ^UNCLASSIFIABLE^ [Concomitant]
  3. ASPIRIN [Concomitant]
     Indication: ANTIINFLAMMATORY THERAPY
  4. ALEVE [Concomitant]
     Indication: ANTIINFLAMMATORY THERAPY
     Dosage: UNK
  5. ALEVE [Concomitant]
     Indication: OEDEMA PERIPHERAL
     Dosage: UNK
  6. ALEVE [Concomitant]
  7. ASPIRIN [Concomitant]
     Indication: OEDEMA PERIPHERAL

REACTIONS (3)
  - PAIN IN EXTREMITY [None]
  - DEEP VEIN THROMBOSIS [None]
  - OEDEMA PERIPHERAL [None]
